FAERS Safety Report 10011047 (Version 2)
Quarter: 2014Q3

REPORT INFORMATION
  Report Type: Spontaneous
  Country: US (occurrence: US)
  Receive Date: 20140314
  Receipt Date: 20140716
  Transmission Date: 20150326
  Serious: Yes (Other)
  Sender: FDA-Public Use
  Company Number: US-BAYER-2014-037236

PATIENT
  Age: 35 Year
  Sex: Female
  Weight: 59.18 kg

DRUGS (2)
  1. ACYCLOVIR [ACICLOVIR] [Concomitant]
     Active Substance: ACYCLOVIR
     Dosage: 400 MG, UNK
  2. YAZ [Suspect]
     Active Substance: DROSPIRENONE\ETHINYL ESTRADIOL
     Dosage: UNK
     Dates: start: 200705, end: 20070824

REACTIONS (9)
  - Anxiety [None]
  - Emotional distress [None]
  - General physical health deterioration [Recovered/Resolved]
  - Injury [Recovered/Resolved]
  - Pulmonary embolism [Recovered/Resolved]
  - Dyspnoea [Recovered/Resolved]
  - Chest pain [Recovered/Resolved]
  - Pain [Recovered/Resolved]
  - Pain [None]

NARRATIVE: CASE EVENT DATE: 20070824
